FAERS Safety Report 12976088 (Version 4)
Quarter: 2017Q2

REPORT INFORMATION
  Report Type: Report from Study
  Country: US (occurrence: US)
  Receive Date: 20161126
  Receipt Date: 20170517
  Transmission Date: 20170830
  Serious: Yes (Other)
  Sender: FDA-Public Use
  Company Number: PHHY2016US160039

PATIENT
  Age: 47 Year
  Sex: Female

DRUGS (1)
  1. GILENYA [Suspect]
     Active Substance: FINGOLIMOD HYDROCHLORIDE
     Indication: MULTIPLE SCLEROSIS
     Dosage: UNK UNK, QD
     Route: 048

REACTIONS (17)
  - Pruritus [Recovered/Resolved]
  - Haemangioma of skin [Unknown]
  - Solar lentigo [Unknown]
  - Seborrhoeic keratosis [Unknown]
  - Tendon sheath disorder [Unknown]
  - Cough [Recovered/Resolved]
  - Gait disturbance [Unknown]
  - Irritability [Unknown]
  - Hypersensitivity [Unknown]
  - Urticaria [Recovered/Resolved]
  - Ear pain [Recovered/Resolved]
  - Gastrooesophageal reflux disease [Unknown]
  - Birth mark [Unknown]
  - Bradycardia [Unknown]
  - Sinus congestion [Unknown]
  - Synovial cyst [Unknown]
  - Milia [Unknown]

NARRATIVE: CASE EVENT DATE: 20160929
